FAERS Safety Report 25949755 (Version 2)
Quarter: 2025Q4

REPORT INFORMATION
  Report Type: Report from Study
  Country: US (occurrence: US)
  Receive Date: 20251022
  Receipt Date: 20251204
  Transmission Date: 20260117
  Serious: Yes (Death, Hospitalization, Other)
  Sender: PFIZER
  Company Number: US-PFIZER INC-PV202500052883

PATIENT
  Age: 54 Year
  Sex: Male

DRUGS (5)
  1. LORBRENA [Suspect]
     Active Substance: LORLATINIB
     Indication: Lung neoplasm malignant
     Dosage: 100 MG, 1X/DAY
     Route: 048
     Dates: start: 20250417
  2. LORBRENA [Suspect]
     Active Substance: LORLATINIB
     Dosage: 100 MG, DAILY
     Route: 048
  3. LORBRENA [Suspect]
     Active Substance: LORLATINIB
     Dosage: 100 MG, 1X/DAY
     Route: 048
  4. LORBRENA [Suspect]
     Active Substance: LORLATINIB
     Dosage: 100 MG, 1X/DAY
     Route: 048
  5. TAGRISSO [Concomitant]
     Active Substance: OSIMERTINIB
     Dosage: UNK

REACTIONS (15)
  - Death [Fatal]
  - Pyrexia [Unknown]
  - Metastases to central nervous system [Unknown]
  - Constipation [Recovered/Resolved]
  - Blood cholesterol increased [Unknown]
  - Mood altered [Unknown]
  - Anxiety [Unknown]
  - Weight increased [Unknown]
  - Hyperphagia [Unknown]
  - Abdominal distension [Unknown]
  - Flatulence [Unknown]
  - Weight decreased [Unknown]
  - Emotional disorder [Unknown]
  - Hypoaesthesia [Unknown]
  - General physical health deterioration [Unknown]

NARRATIVE: CASE EVENT DATE: 20250101
